FAERS Safety Report 24272663 (Version 3)
Quarter: 2024Q4

REPORT INFORMATION
  Report Type: Spontaneous
  Country: US (occurrence: US)
  Receive Date: 20240902
  Receipt Date: 20241127
  Transmission Date: 20250115
  Serious: No
  Sender: BLUEPRINT MEDICINES
  Company Number: US-Blueprint Medicines Corporation-4609

PATIENT
  Age: 75 Year
  Sex: Female

DRUGS (2)
  1. AYVAKIT [Suspect]
     Active Substance: AVAPRITINIB
     Indication: Systemic mastocytosis
     Route: 065
  2. AYVAKIT [Suspect]
     Active Substance: AVAPRITINIB
     Route: 065

REACTIONS (6)
  - Oropharyngeal pain [Unknown]
  - Pain [Unknown]
  - Adverse drug reaction [Unknown]
  - Amnesia [Unknown]
  - Disturbance in attention [Unknown]
  - COVID-19 [Unknown]

NARRATIVE: CASE EVENT DATE: 20240828
